FAERS Safety Report 8358651-8 (Version None)
Quarter: 2012Q2

REPORT INFORMATION
  Report Type: 
  Country: None (occurrence: None)
  Receive Date: 20120514
  Receipt Date: 20120504
  Transmission Date: 20120825
  Serious: Yes (Hospitalization)
  Sender: FDA-Public Use
  Company Number: US-MERCK-1108USA00542

PATIENT
  Age: 64 Year
  Sex: Female
  Weight: 67 kg

DRUGS (1)
  1. FOSAMAX [Suspect]
     Indication: MENOPAUSE
     Route: 048
     Dates: start: 20030101

REACTIONS (6)
  - GINGIVAL BLEEDING [None]
  - OFF LABEL USE [None]
  - FEMUR FRACTURE [None]
  - PERIODONTAL DISEASE [None]
  - ABSCESS [None]
  - DENTAL CARIES [None]
